FAERS Safety Report 8171838-2 (Version None)
Quarter: 2012Q1

REPORT INFORMATION
  Report Type: 
  Country: None (occurrence: None)
  Receive Date: 20120113
  Receipt Date: 20111130
  Transmission Date: 20120608
  Serious: Yes (Other)
  Sender: FDA-Public Use
  Company Number: 2011S1000114

PATIENT
  Age: 58 Year
  Sex: Male

DRUGS (13)
  1. ZYRTEC [Concomitant]
  2. ROSUVASTATIN [Concomitant]
  3. VITAMIN D2 [Concomitant]
  4. KRYSTEXXA [Suspect]
     Indication: GOUT
     Dosage: X1;IV ; 8 MG;X1;IV
     Route: 042
     Dates: start: 20111130, end: 20111130
  5. KRYSTEXXA [Suspect]
     Indication: GOUT
     Dosage: X1;IV ; 8 MG;X1;IV
     Route: 042
     Dates: start: 20111108, end: 20111108
  6. LISINOPRIL [Concomitant]
  7. COLCHICINE [Concomitant]
  8. TYLENOL (CAPLET) [Concomitant]
  9. FEBUXOSTAT [Concomitant]
  10. PERCOCET [Concomitant]
  11. HYDROCORTISONE [Concomitant]
  12. CALCIUM PLUS VITAMIN D [Concomitant]
  13. INSULIN [Concomitant]

REACTIONS (1)
  - INFUSION RELATED REACTION [None]
